FAERS Safety Report 10215850 (Version 1)
Quarter: 2014Q2

REPORT INFORMATION
  Report Type: Spontaneous
  Country: IT (occurrence: None)
  Receive Date: 20140602
  Receipt Date: 20140602
  Transmission Date: 20141212
  Serious: Yes (Hospitalization)
  Sender: FDA-Public Use
  Company Number: 2014AP003125

PATIENT
  Age: 46 Year
  Sex: Female

DRUGS (1)
  1. PANTOPRAZOLE (PANTOPRAZOLE) TABLET [Suspect]
     Indication: ABDOMINAL PAIN UPPER
     Dosage: 1DF, SINGLE, ORAL
     Route: 048
     Dates: start: 20140414, end: 20140414

REACTIONS (5)
  - Throat tightness [None]
  - Dysphagia [None]
  - Erythema [None]
  - Vomiting [None]
  - Nausea [None]
